FAERS Safety Report 5345232-3 (Version None)
Quarter: 2007Q2

REPORT INFORMATION
  Report Type: 
  Country: None (occurrence: None)
  Receive Date: 20070605
  Receipt Date: 20070523
  Transmission Date: 20071010
  Serious: Yes (Other)
  Sender: FDA-Public Use
  Company Number: PHBS2007DE08776

PATIENT
  Age: 41 Year
  Sex: Male

DRUGS (1)
  1. PREDNISOLONE [Suspect]

REACTIONS (1)
  - KERATITIS FUNGAL [None]
